FAERS Safety Report 23943166 (Version 2)
Quarter: 2024Q2

REPORT INFORMATION
  Report Type: Spontaneous
  Country: NL (occurrence: NL)
  Receive Date: 20240605
  Receipt Date: 20240613
  Transmission Date: 20240715
  Serious: Yes (Hospitalization, Disabling)
  Sender: FDA-Public Use
  Company Number: None

PATIENT
  Age: 76 Year
  Sex: Female
  Weight: 68 kg

DRUGS (12)
  1. CIPROFLOXACIN [Suspect]
     Active Substance: CIPROFLOXACIN
     Indication: Dyspnoea
     Dosage: 1 PIECE TWICE A DAY FOR 14 DAYS, BRAND NAME NOT SPECIFIED
     Route: 065
     Dates: start: 20240226, end: 20240308
  2. CHOLECALCIFEROL [Concomitant]
     Active Substance: CHOLECALCIFEROL
     Indication: Product used for unknown indication
     Dosage: 25.000IE / BRAND NAME NOT SPECIFIED
     Route: 065
  3. LOSARTAN [Concomitant]
     Active Substance: LOSARTAN
     Indication: Product used for unknown indication
     Dosage: FO/BRAND NAME NOT SPECIFIED
     Route: 065
  4. ASPIRIN [Concomitant]
     Active Substance: ASPIRIN
     Indication: Product used for unknown indication
     Dosage: BRAND NAME NOT SPECIFIED
     Route: 065
  5. TIOTROPIUM [Concomitant]
     Active Substance: TIOTROPIUM
     Indication: Product used for unknown indication
     Dosage: BRAND NAME NOT SPECIFIED
     Route: 065
  6. PREDNISOLONE [Concomitant]
     Active Substance: PREDNISOLONE
     Indication: Product used for unknown indication
     Dosage: 5MG, ACCORDING TO LUNG DOCTOR^S APPOINTMENT, 1ST DAY 1 X 7 TABLETS, 2ND DAY 1 X 6 TABLETS, 3RD DA...
     Route: 065
  7. AMOXICILLIN [Concomitant]
     Active Substance: AMOXICILLIN
     Indication: Product used for unknown indication
     Dosage: BRAND NAME NOT SPECIFIED
     Route: 065
  8. OMEPRAZOLE [Concomitant]
     Active Substance: DONEPEZIL HYDROCHLORIDE\OMEPRAZOLE\OMEPRAZOLE MAGNESIUM
     Indication: Product used for unknown indication
     Dosage: MSR/BRAND NAME NOT SPECIFIED
     Route: 065
  9. BECLOMETASONE/FORMOTEROL/GLYCOPYRRONIUM [Concomitant]
     Indication: Product used for unknown indication
     Dosage: AEROSOL, 87/5/9 ?G/DOSE (MICROGRAMS PER DOSE) /	BECLOMET/FORMOT/GLYCOPYR BRAND NAME NOT SPECIFIED
     Route: 065
  10. FUROSEMIDE [Concomitant]
     Active Substance: FUROSEMIDE
     Indication: Product used for unknown indication
     Dosage: BRAND NAME NOT SPECIFIED
     Route: 065
  11. FENOTEROL IPRATROPIUM [Concomitant]
     Indication: Product used for unknown indication
     Dosage: AEROSOL 50/20UG/DO / BRAND NAME NOT SPECIFIED
     Route: 065
  12. SPIRONOLACTONE [Concomitant]
     Active Substance: SPIRONOLACTONE
     Indication: Product used for unknown indication
     Dosage: BRAND NAME NOT SPECIFIED
     Route: 065

REACTIONS (1)
  - Tendon rupture [Recovering/Resolving]
